FAERS Safety Report 19699035 (Version 1)
Quarter: 2021Q3

REPORT INFORMATION
  Report Type: Other
  Country: US (occurrence: US)
  Receive Date: 20210813
  Receipt Date: 20210813
  Transmission Date: 20211014
  Serious: Yes (Hospitalization, Other)
  Sender: FDA-Public Use
  Company Number: US-ROCHE-2883887

PATIENT
  Age: 67 Year
  Sex: Female
  Weight: 77.18 kg

DRUGS (3)
  1. OCREVUS [Suspect]
     Active Substance: OCRELIZUMAB
     Indication: RELAPSING-REMITTING MULTIPLE SCLEROSIS
     Dosage: (PRESCRIBED AS 300 MG ON DAY 1 AND DAY 15 AND 600 MG ONCE IN 6 MONTHS)
     Route: 042
     Dates: start: 2017
  2. COVID?19 VACCINE [Concomitant]
     Route: 065
     Dates: start: 20210426
  3. COVID?19 VACCINE [Concomitant]
     Route: 065
     Dates: start: 20210324

REACTIONS (10)
  - Pain in extremity [Not Recovered/Not Resolved]
  - COVID-19 [Unknown]
  - Vomiting [Unknown]
  - Pyrexia [Recovered/Resolved]
  - Dyspnoea [Unknown]
  - Headache [Not Recovered/Not Resolved]
  - Peripheral swelling [Not Recovered/Not Resolved]
  - Vulval neoplasm [Unknown]
  - Nausea [Not Recovered/Not Resolved]
  - Pneumonia [Unknown]

NARRATIVE: CASE EVENT DATE: 202102
